FAERS Safety Report 9471231 (Version 1)
Quarter: 2013Q3

REPORT INFORMATION
  Report Type: Spontaneous
  Country: US (occurrence: None)
  Receive Date: 20130816
  Receipt Date: 20130816
  Transmission Date: 20140515
  Serious: Yes (Hospitalization)
  Sender: FDA-Public Use
  Company Number: PL13-60

PATIENT
  Sex: Female

DRUGS (1)
  1. POTASSIUM [Suspect]
     Indication: MUSCLE SPASMS
     Dosage: 1 TABLET ORALLY
     Route: 048
     Dates: start: 20130729

REACTIONS (2)
  - Atrial fibrillation [None]
  - Thirst [None]
